FAERS Safety Report 25569283 (Version 2)
Quarter: 2025Q3

REPORT INFORMATION
  Report Type: Report from Study
  Country: US (occurrence: US)
  Receive Date: 20250716
  Receipt Date: 20250828
  Transmission Date: 20251021
  Serious: No
  Sender: ABBVIE
  Company Number: US-ABBVIE-6371747

PATIENT
  Age: 78 Year
  Sex: Female
  Weight: 54.884 kg

DRUGS (1)
  1. VYALEV [Suspect]
     Active Substance: FOSCARBIDOPA\FOSLEVODOPA
     Indication: Parkinson^s disease
     Route: 058
     Dates: start: 20250520

REACTIONS (5)
  - Infusion site reaction [Unknown]
  - Infusion site cellulitis [Recovering/Resolving]
  - Infusion site abscess [Recovering/Resolving]
  - Infusion site induration [Recovering/Resolving]
  - Catheter site infection [Recovered/Resolved]

NARRATIVE: CASE EVENT DATE: 20250501
